FAERS Safety Report 9716003 (Version 1)
Quarter: 2013Q4

REPORT INFORMATION
  Report Type: Report from Study
  Country: US (occurrence: US)
  Receive Date: 20131127
  Receipt Date: 20131127
  Transmission Date: 20140711
  Serious: Yes (Other)
  Sender: FDA-Public Use
  Company Number: US-ROCHE-1292297

PATIENT
  Age: 85 Year
  Sex: Male

DRUGS (4)
  1. AVASTIN [Suspect]
     Indication: VENOUS OCCLUSION
     Dosage: LEFT EYE
     Route: 065
     Dates: end: 20130920
  2. LUCENTIS [Suspect]
     Indication: VENOUS OCCLUSION
     Dosage: LEFT EYE
     Route: 065
  3. COMBIGAN [Concomitant]
     Route: 047
  4. EXFORGE [Concomitant]
     Indication: HYPERTENSION
     Dosage: 10-320 MG
     Route: 065

REACTIONS (7)
  - Ocular hyperaemia [Recovering/Resolving]
  - Eye infection [Recovering/Resolving]
  - Eye pain [Recovering/Resolving]
  - Drug hypersensitivity [Recovering/Resolving]
  - Drug ineffective [Unknown]
  - Eye swelling [Recovering/Resolving]
  - Photopsia [Unknown]
